FAERS Safety Report 24964528 (Version 1)
Quarter: 2025Q1

REPORT INFORMATION
  Report Type: Spontaneous
  Country: US (occurrence: US)
  Receive Date: 20250213
  Receipt Date: 20250213
  Transmission Date: 20250409
  Serious: Yes (Other)
  Sender: TAKEDA
  Company Number: US-TAKEDA-2025TUS015596

PATIENT
  Sex: Male
  Weight: 72.4 kg

DRUGS (10)
  1. VELCADE [Suspect]
     Active Substance: BORTEZOMIB
     Indication: Plasma cell myeloma
  2. VELCADE [Suspect]
     Active Substance: BORTEZOMIB
     Dosage: UNK UNK, 1/WEEK
     Dates: start: 20240821, end: 20240918
  3. VELCADE [Suspect]
     Active Substance: BORTEZOMIB
     Dates: start: 20240918, end: 20241017
  4. DEXAMETHASONE [Suspect]
     Active Substance: DEXAMETHASONE
     Indication: Plasma cell myeloma
  5. DEXAMETHASONE [Suspect]
     Active Substance: DEXAMETHASONE
     Dosage: UNK UNK, 1/WEEK
     Dates: start: 20240821, end: 20240918
  6. DEXAMETHASONE [Suspect]
     Active Substance: DEXAMETHASONE
     Dates: start: 20240918, end: 20241017
  7. DARATUMUMAB [Suspect]
     Active Substance: DARATUMUMAB
     Indication: Plasma cell myeloma
  8. DARATUMUMAB [Suspect]
     Active Substance: DARATUMUMAB
     Dates: start: 20240918, end: 20241017
  9. LENALIDOMIDE [Suspect]
     Active Substance: LENALIDOMIDE
     Indication: Plasma cell myeloma
  10. CYCLOPHOSPHAMIDE [Suspect]
     Active Substance: CYCLOPHOSPHAMIDE
     Indication: Plasma cell myeloma
     Dosage: UNK, 1/WEEK
     Dates: start: 20240821, end: 20240918

REACTIONS (2)
  - Plasma cell myeloma [Unknown]
  - Product use issue [Unknown]
